FAERS Safety Report 25378519 (Version 1)
Quarter: 2025Q2

REPORT INFORMATION
  Report Type: Spontaneous
  Country: US (occurrence: US)
  Receive Date: 20250530
  Receipt Date: 20250530
  Transmission Date: 20250716
  Serious: Yes (Other)
  Sender: BRISTOL-MYERS SQUIBB COMPANY
  Company Number: US-BRISTOL-MYERS SQUIBB COMPANY-2025-075346

PATIENT
  Age: 66 Year
  Sex: Female
  Weight: 60.33 kg

DRUGS (1)
  1. REVLIMID [Suspect]
     Active Substance: LENALIDOMIDE
     Indication: Follicular lymphoma
     Dosage: 1 CAPSULE DAILY ON DAYS 2-22 OF EVERY?28 DAY CYCLE
     Route: 048
     Dates: start: 202408

REACTIONS (5)
  - Fatigue [Recovering/Resolving]
  - Headache [Recovering/Resolving]
  - Abdominal pain upper [Recovering/Resolving]
  - Diarrhoea [Recovering/Resolving]
  - Neuropathy peripheral [Recovering/Resolving]
